FAERS Safety Report 15981540 (Version 4)
Quarter: 2019Q3

REPORT INFORMATION
  Report Type: Spontaneous
  Country: US (occurrence: US)
  Receive Date: 20190219
  Receipt Date: 20190823
  Transmission Date: 20191004
  Serious: Yes (Death, Hospitalization, Other)
  Sender: FDA-Public Use
  Company Number: US-JNJFOC-20190211455

PATIENT
  Age: 51 Year
  Sex: Female

DRUGS (7)
  1. STELARA [Suspect]
     Active Substance: USTEKINUMAB
     Indication: CROHN^S DISEASE
     Route: 058
     Dates: start: 20171019, end: 20190129
  2. VITAMIN D3 [Concomitant]
     Active Substance: CHOLECALCIFEROL
     Indication: PRODUCT USED FOR UNKNOWN INDICATION
     Route: 065
  3. LOMOTIL [Concomitant]
     Active Substance: ATROPINE SULFATE\DIPHENOXYLATE HYDROCHLORIDE
     Indication: DIARRHOEA
     Dosage: 2 TABLETS ONCE 6 HOURS
     Route: 065
  4. LEVOTHYROXINE. [Concomitant]
     Active Substance: LEVOTHYROXINE
     Indication: PRODUCT USED FOR UNKNOWN INDICATION
     Route: 065
  5. STELARA [Suspect]
     Active Substance: USTEKINUMAB
     Route: 058
  6. CYTARABINE. [Suspect]
     Active Substance: CYTARABINE
     Indication: PRODUCT USED FOR UNKNOWN INDICATION
     Route: 065
  7. DICYCLOMINE [Concomitant]
     Active Substance: DICYCLOMINE HYDROCHLORIDE
     Indication: ABDOMINAL RIGIDITY
     Route: 048

REACTIONS (9)
  - Disseminated intravascular coagulation [Not Recovered/Not Resolved]
  - Off label use [Unknown]
  - Pneumocystis jirovecii pneumonia [Unknown]
  - Acute myelomonocytic leukaemia [Fatal]
  - Pneumonia bacterial [Unknown]
  - Septic shock [Fatal]
  - Tumour lysis syndrome [Unknown]
  - Oesophageal candidiasis [Unknown]
  - Product use issue [Unknown]

NARRATIVE: CASE EVENT DATE: 2018
